FAERS Safety Report 17735550 (Version 1)
Quarter: 2020Q2

REPORT INFORMATION
  Report Type: Spontaneous
  Country: ID (occurrence: ID)
  Receive Date: 20200501
  Receipt Date: 20200501
  Transmission Date: 20200714
  Serious: Yes (Other)
  Sender: FDA-Public Use
  Company Number: ID-PFIZER INC-2020174695

PATIENT
  Age: 30 Year
  Sex: Male

DRUGS (2)
  1. METHYLPREDNISOLONE ACETATE. [Suspect]
     Active Substance: METHYLPREDNISOLONE ACETATE
     Indication: ENDOCRINE OPHTHALMOPATHY
     Dosage: 250 MG, WEEKLY (INJECTION)
  2. METHYLPREDNISOLONE ACETATE. [Suspect]
     Active Substance: METHYLPREDNISOLONE ACETATE
     Indication: BASEDOW^S DISEASE
     Dosage: 500 MG, WEEKLY (INJECTION)

REACTIONS (1)
  - Hepatitis B reactivation [Unknown]
